FAERS Safety Report 9688899 (Version 2)
Quarter: 2014Q2

REPORT INFORMATION
  Report Type: Spontaneous
  Country: NL (occurrence: None)
  Receive Date: 20131112
  Receipt Date: 20140527
  Transmission Date: 20141212
  Serious: Yes (Other)
  Sender: FDA-Public Use
  Company Number: 2013000297

PATIENT
  Age: 32 Year
  Sex: Female

DRUGS (2)
  1. ACEON [Suspect]
     Indication: HYPERTENSION
     Route: 048
     Dates: start: 201303
  2. NIFEDIPINE (NIFEDIPINE) (NIFEDIPINE) [Concomitant]

REACTIONS (2)
  - Presumed ocular histoplasmosis syndrome [None]
  - Condition aggravated [None]
